FAERS Safety Report 9287648 (Version 2)
Quarter: 2013Q2

REPORT INFORMATION
  Report Type: Spontaneous
  Country: JP (occurrence: JP)
  Receive Date: 20130514
  Receipt Date: 20130524
  Transmission Date: 20140414
  Serious: Yes (Hospitalization)
  Sender: FDA-Public Use
  Company Number: PHHY2013JP046726

PATIENT
  Age: 59 Year
  Sex: Female

DRUGS (3)
  1. NEORAL [Suspect]
     Indication: PROPHYLAXIS AGAINST TRANSPLANT REJECTION
     Dosage: 100 MG, QD
     Route: 048
     Dates: start: 2000
  2. MIZORIBINE [Concomitant]
     Dosage: 200 MG, UNK
  3. METHYLPREDNISOLONE [Concomitant]
     Dosage: 4 MG, UNK

REACTIONS (3)
  - Renal tubular acidosis [Recovered/Resolved]
  - Hypokalaemia [Unknown]
  - Malaise [Unknown]
